FAERS Safety Report 20161037 (Version 1)
Quarter: 2021Q4

REPORT INFORMATION
  Report Type: Spontaneous
  Country: US (occurrence: None)
  Receive Date: 20211208
  Receipt Date: 20211208
  Transmission Date: 20220303
  Serious: Yes (Death)
  Sender: FDA-Public Use
  Company Number: None

PATIENT
  Age: 26 Year
  Sex: Male

DRUGS (4)
  1. HERBALS\MITRAGYNINE [Suspect]
     Active Substance: HERBALS\MITRAGYNINE
  2. GABAPENTIN [Concomitant]
     Active Substance: GABAPENTIN
  3. FLUOXETINE [Concomitant]
     Active Substance: FLUOXETINE HYDROCHLORIDE
  4. FLUALPRAZOLAM [Concomitant]
     Active Substance: FLUALPRAZOLAM

REACTIONS (3)
  - Illness [None]
  - Toxicity to various agents [None]
  - Accidental death [None]

NARRATIVE: CASE EVENT DATE: 20200527
